FAERS Safety Report 21009270 (Version 3)
Quarter: 2022Q3

REPORT INFORMATION
  Report Type: Spontaneous
  Country: DE (occurrence: DE)
  Receive Date: 20220627
  Receipt Date: 20220908
  Transmission Date: 20221027
  Serious: Yes (Other)
  Sender: FDA-Public Use
  Company Number: DE-MYLANLABS-2022M1047520

PATIENT
  Age: 62 Year
  Sex: Male
  Weight: 89 kg

DRUGS (4)
  1. MUSE [Suspect]
     Active Substance: ALPROSTADIL
     Indication: Genital disorder
     Dosage: UNK, 1 X 500
     Route: 065
     Dates: start: 20220601, end: 20220617
  2. MUSE [Suspect]
     Active Substance: ALPROSTADIL
     Dosage: UNK, 1 X 500
     Route: 065
     Dates: start: 20220620, end: 20220621
  3. MUSE [Suspect]
     Active Substance: ALPROSTADIL
     Dosage: UNK, 1 X 500
     Route: 065
     Dates: start: 20220630, end: 20220701
  4. MUSE [Suspect]
     Active Substance: ALPROSTADIL
     Dosage: UNK, 1 X 500
     Route: 065
     Dates: start: 20220601, end: 202206

REACTIONS (5)
  - Erectile dysfunction [Recovered/Resolved]
  - Penile discharge [Unknown]
  - Testicular swelling [Recovered/Resolved]
  - Penis disorder [Unknown]
  - Sexual dysfunction [Unknown]

NARRATIVE: CASE EVENT DATE: 20220601
